FAERS Safety Report 6127908-3 (Version None)
Quarter: 2009Q1

REPORT INFORMATION
  Report Type: 
  Country: None (occurrence: None)
  Receive Date: 20090320
  Receipt Date: 20090320
  Transmission Date: 20090719
  Serious: Yes (Hospitalization, Disabling)
  Sender: FDA-Public Use
  Company Number: None

PATIENT
  Sex: Female

DRUGS (4)
  1. ZOMETA [Suspect]
     Indication: BREAST CANCER
     Dosage: 4 MG MONTHLY IV
     Route: 042
  2. LIPITOR [Concomitant]
  3. EFFEXOR [Concomitant]
  4. RADIATION THERAPY TO (L) BREAST [Concomitant]

REACTIONS (2)
  - BONE DISORDER [None]
  - GINGIVITIS [None]
